FAERS Safety Report 8212930-3 (Version None)
Quarter: 2012Q1

REPORT INFORMATION
  Report Type: 
  Country: None (occurrence: None)
  Receive Date: 20120315
  Receipt Date: 20120310
  Transmission Date: 20120608
  Serious: Yes (Hospitalization)
  Sender: FDA-Public Use
  Company Number: US-BAYER-2011-035043

PATIENT
  Age: 24 Year
  Sex: Female
  Weight: 90.703 kg

DRUGS (12)
  1. PHENERGAN [Concomitant]
     Route: 042
  2. DEMEROL [Concomitant]
  3. FAMOTIDINE [Concomitant]
  4. KLONOPIN [Concomitant]
  5. YASMIN [Suspect]
  6. LEVAQUIN [Concomitant]
  7. YAZ [Suspect]
     Indication: MENSTRUAL CYCLE MANAGEMENT
     Dosage: UNK
     Dates: start: 20080101, end: 20090101
  8. ANTIBIOTICS [Concomitant]
  9. VITAMIN D [Concomitant]
  10. FLAGYL [Concomitant]
  11. VICODIN [Concomitant]
  12. CELEXA [Concomitant]

REACTIONS (5)
  - ABDOMINAL PAIN [None]
  - CHOLECYSTITIS ACUTE [None]
  - VOMITING [None]
  - BILE DUCT STONE [None]
  - GALLBLADDER DISORDER [None]
